FAERS Safety Report 4952099-1 (Version None)
Quarter: 2006Q1

REPORT INFORMATION
  Report Type: 
  Country: None (occurrence: None)
  Receive Date: 20060320
  Receipt Date: 20060317
  Transmission Date: 20060701
  Serious: Yes (Other)
  Sender: FDA-Public Use
  Company Number: 2006BH004502

PATIENT
  Age: 35 Year
  Sex: Female

DRUGS (5)
  1. CISPLATIN [Suspect]
     Indication: B-CELL LYMPHOMA
     Dosage: 100 MG/M***2; EVERY 3 WK; IV
     Route: 042
     Dates: start: 20051201, end: 20060301
  2. RITUXIMAB (RITUXIMAB) [Suspect]
     Indication: B-CELL LYMPHOMA
     Dosage: 375 MG/M***2; EVERY 3WK; UNK
     Dates: start: 20051201, end: 20060301
  3. CYTARABINE [Suspect]
     Indication: B-CELL LYMPHOMA
     Dosage: 2000 MG/M***2; UNKNOWN; UNK
     Dates: start: 20051201, end: 20060301
  4. DEXAMETHASONE [Suspect]
     Indication: B-CELL LYMPHOMA
     Dosage: 40 MG; AS NEEDED; UNK
     Dates: start: 20051201, end: 20060301
  5. G-CSF (GRANULOCYTE COLONY STIMULATING FACTOR) [Suspect]
     Indication: B-CELL LYMPHOMA
     Dosage: EVERY 3 WK;SC
     Route: 058
     Dates: start: 20051201, end: 20060301

REACTIONS (5)
  - FALL [None]
  - HAEMOGLOBIN DECREASED [None]
  - PLATELET COUNT DECREASED [None]
  - SEPSIS [None]
  - WHITE BLOOD CELL COUNT DECREASED [None]
